FAERS Safety Report 6664349-4 (Version None)
Quarter: 2010Q2

REPORT INFORMATION
  Report Type: 
  Country: None (occurrence: None)
  Receive Date: 20100401
  Receipt Date: 20100324
  Transmission Date: 20101027
  Serious: Yes (Hospitalization)
  Sender: FDA-Public Use
  Company Number: PHHY2010PA18917

PATIENT
  Age: 53 Year
  Sex: Male

DRUGS (2)
  1. EXFORGE [Suspect]
     Indication: HYPERTENSION
     Dosage: 320/5 MG
     Dates: start: 20091201
  2. DIURESTEN [Concomitant]

REACTIONS (3)
  - DIZZINESS [None]
  - FALL [None]
  - HYDROCEPHALUS [None]
